FAERS Safety Report 17760899 (Version 6)
Quarter: 2021Q2

REPORT INFORMATION
  Report Type: Spontaneous
  Country: US (occurrence: US)
  Receive Date: 20200508
  Receipt Date: 20210408
  Transmission Date: 20210716
  Serious: Yes (Disabling, Other)
  Sender: FDA-Public Use
  Company Number: US-PFIZER INC-2020183579

PATIENT
  Age: 81 Year
  Sex: Female
  Weight: 79.38 kg

DRUGS (1)
  1. PREGABALIN. [Suspect]
     Active Substance: PREGABALIN
     Indication: NEUROPATHY PERIPHERAL
     Dosage: 75 MG, 2X/DAY (MORNING AND EVENING)
     Route: 048
     Dates: end: 20200907

REACTIONS (9)
  - Eye irritation [Unknown]
  - Blister [Not Recovered/Not Resolved]
  - Ocular hyperaemia [Not Recovered/Not Resolved]
  - Eye inflammation [Not Recovered/Not Resolved]
  - Vision blurred [Not Recovered/Not Resolved]
  - Drug hypersensitivity [Not Recovered/Not Resolved]
  - Somnolence [Not Recovered/Not Resolved]
  - Dysphonia [Not Recovered/Not Resolved]
  - Balance disorder [Not Recovered/Not Resolved]
